FAERS Safety Report 20070008 (Version 1)
Quarter: 2021Q4

REPORT INFORMATION
  Report Type: Spontaneous
  Country: US (occurrence: None)
  Receive Date: 20211115
  Receipt Date: 20211115
  Transmission Date: 20220303
  Serious: Yes (Other)
  Sender: FDA-Public Use
  Company Number: None

PATIENT
  Age: 37 Year
  Sex: Male
  Weight: 117 kg

DRUGS (1)
  1. ALPRAZOLAM XR [Suspect]
     Active Substance: ALPRAZOLAM
     Indication: Anxiety
     Dosage: OTHER QUANTITY : 60 TABLET(S);?FREQUENCY : AS NEEDED;?
     Route: 048

REACTIONS (5)
  - Palpitations [None]
  - Cough [None]
  - Heart rate increased [None]
  - Blood pressure increased [None]
  - Anxiety [None]

NARRATIVE: CASE EVENT DATE: 20211101
